FAERS Safety Report 6195618-2 (Version None)
Quarter: 2009Q2

REPORT INFORMATION
  Report Type: 
  Country: None (occurrence: None)
  Receive Date: 20090519
  Receipt Date: 20090514
  Transmission Date: 20091009
  Serious: Yes (Other)
  Sender: FDA-Public Use
  Company Number: IT-ABBOTT-09P-083-0573607-00

PATIENT
  Sex: Female

DRUGS (1)
  1. DEPAKIN CHRONO TABLETS [Suspect]
     Indication: EPILEPSY
     Route: 048
     Dates: start: 20090416, end: 20090416

REACTIONS (4)
  - ABNORMAL DREAMS [None]
  - DEJA VU [None]
  - HALLUCINATION [None]
  - INITIAL INSOMNIA [None]
